FAERS Safety Report 18032340 (Version 2)
Quarter: 2020Q3

REPORT INFORMATION
  Report Type: Spontaneous
  Country: US (occurrence: US)
  Receive Date: 20200716
  Receipt Date: 20200922
  Transmission Date: 20201103
  Serious: Yes (Other)
  Sender: FDA-Public Use
  Company Number: US-DRREDDYS-USA/USA/20/0125087

PATIENT
  Age: 83 Year
  Sex: Male

DRUGS (5)
  1. VENLAFAXINE HYDROCHLORIDE. [Concomitant]
     Active Substance: VENLAFAXINE HYDROCHLORIDE
  2. OLANZAPINE FILM?COATED TABLET [Suspect]
     Active Substance: OLANZAPINE
     Indication: MAJOR DEPRESSION
     Dosage: TITRATED UP TO 25 MG DAILY
     Route: 048
  3. OLANZAPINE FILM?COATED TABLET [Suspect]
     Active Substance: OLANZAPINE
  4. VENLAFAXINE HYDROCHLORIDE. [Concomitant]
     Active Substance: VENLAFAXINE HYDROCHLORIDE
  5. VENLAFAXINE HYDROCHLORIDE. [Concomitant]
     Active Substance: VENLAFAXINE HYDROCHLORIDE
     Indication: MAJOR DEPRESSION
     Dosage: TITRATED UP TO 150 MG DAILY

REACTIONS (3)
  - Constipation [Unknown]
  - Parkinsonism [Unknown]
  - Sedation [Unknown]
